FAERS Safety Report 8203846-7 (Version None)
Quarter: 2012Q1

REPORT INFORMATION
  Report Type: 
  Country: None (occurrence: None)
  Receive Date: 20120308
  Receipt Date: 20120228
  Transmission Date: 20120608
  Serious: No
  Sender: FDA-Public Use
  Company Number: 2012SP011516

PATIENT
  Age: 32 Year
  Sex: Female
  Weight: 104 kg

DRUGS (6)
  1. DIVALPROEX SODIUM [Concomitant]
  2. LYRICA [Concomitant]
  3. ZOPICLONE [Concomitant]
  4. SAPHRIS [Suspect]
     Indication: PRODUCT USED FOR UNKNOWN INDICATION
     Dosage: 5 MG, BID, SL
     Route: 060
     Dates: start: 20110222
  5. INVEGA [Concomitant]
  6. CLONAZEPAM [Concomitant]

REACTIONS (1)
  - SWELLING FACE [None]
